FAERS Safety Report 9649140 (Version 2)
Quarter: 2013Q4

REPORT INFORMATION
  Report Type: Spontaneous
  Country: US (occurrence: US)
  Receive Date: 20131028
  Receipt Date: 20131028
  Transmission Date: 20140711
  Serious: No
  Sender: FDA-Public Use
  Company Number: US-SA-POMP-1003137

PATIENT
  Age: 29 Year
  Sex: Male
  Weight: 85.6 kg

DRUGS (11)
  1. LUMIZYME [Suspect]
     Indication: GLYCOGEN STORAGE DISEASE TYPE II
     Dosage: 1400 MG, Q2W
     Route: 042
     Dates: start: 20130417
  2. LUMIZYME [Suspect]
     Indication: GLYCOGEN STORAGE DISEASE TYPE II
     Dosage: 1620 MG, Q2W
     Route: 042
     Dates: start: 20130503, end: 20130628
  3. LUMIZYME [Suspect]
     Indication: GLYCOGEN STORAGE DISEASE TYPE II
     Dosage: 1712 MG, Q2W
     Route: 042
     Dates: start: 20130712, end: 20130726
  4. LUMIZYME [Suspect]
     Indication: GLYCOGEN STORAGE DISEASE TYPE II
     Dosage: Q2W
     Route: 042
  5. IBUPROFEN [Concomitant]
     Indication: PREMEDICATION
     Dosage: UNK
     Route: 065
  6. PARACETAMOL [Concomitant]
     Indication: PREMEDICATION
     Dosage: UNK
     Route: 065
  7. PARACETAMOL [Concomitant]
     Indication: PRODUCT USED FOR UNKNOWN INDICATION
     Dosage: 7.5/500 MG, BID, PRN
     Route: 065
  8. ALPRAZOLAM [Concomitant]
     Indication: PRODUCT USED FOR UNKNOWN INDICATION
     Dosage: 2 MG, BID, PRN
     Route: 065
  9. LISINOPRIL [Concomitant]
     Indication: BLOOD PRESSURE
     Dosage: 10 MG, PRN
     Route: 065
  10. ACICLOVIR [Concomitant]
     Indication: PRODUCT USED FOR UNKNOWN INDICATION
     Dosage: 800 MG, QID, PRN
     Route: 065
  11. COLECALCIFEROL [Concomitant]
     Indication: PRODUCT USED FOR UNKNOWN INDICATION
     Dosage: 500 U, ONCE/ MONTHLY DOSE:500 UNIT(S)
     Route: 065

REACTIONS (1)
  - Local swelling [Recovered/Resolved]
